FAERS Safety Report 23133706 (Version 1)
Quarter: 2023Q4

REPORT INFORMATION
  Report Type: Report from Study
  Country: CA (occurrence: CA)
  Receive Date: 20231101
  Receipt Date: 20231101
  Transmission Date: 20240110
  Serious: Yes (Hospitalization, Other)
  Sender: FDA-Public Use
  Company Number: CA-JNJFOC-20230901853

PATIENT
  Age: 35 Year
  Sex: Female

DRUGS (2)
  1. REMICADE [Suspect]
     Active Substance: INFLIXIMAB
     Indication: Crohn^s disease
     Dosage: ON 28-SEP-2023, THE PATIENT TOOK INFUSION?EXPIRY DATE: 01-FEB-2026
     Route: 041
  2. PREDNISONE [Suspect]
     Active Substance: PREDNISONE
     Indication: Premedication
     Route: 065
     Dates: start: 2023

REACTIONS (7)
  - Gastritis [Recovering/Resolving]
  - Malaise [Recovering/Resolving]
  - Vomiting [Unknown]
  - Headache [Unknown]
  - Chest pain [Recovered/Resolved]
  - Dyspnoea [Recovered/Resolved]
  - Infusion related reaction [Recovered/Resolved]

NARRATIVE: CASE EVENT DATE: 20230101
